FAERS Safety Report 8358487-8 (Version None)
Quarter: 2012Q2

REPORT INFORMATION
  Report Type: 
  Country: None (occurrence: None)
  Receive Date: 20120514
  Receipt Date: 20120508
  Transmission Date: 20120825
  Serious: Yes (Other)
  Sender: FDA-Public Use
  Company Number: US-PFIZER INC-2012112821

PATIENT
  Sex: Male
  Weight: 84.354 kg

DRUGS (7)
  1. NEXIUM [Concomitant]
     Dosage: 40 MG, UNK
  2. COUMADIN [Suspect]
     Indication: PULMONARY THROMBOSIS
     Dosage: 5 MG, 1X/DAY
     Route: 048
     Dates: start: 20070101, end: 20110202
  3. ARMODAFINIL [Concomitant]
     Indication: SLEEP APNOEA SYNDROME
     Dosage: 125 MG, 2X/DAY
  4. LORTAB [Concomitant]
     Dosage: UNK
  5. VALIUM [Concomitant]
     Dosage: 10 MG, UNK
  6. VIAGRA [Suspect]
     Indication: ERECTILE DYSFUNCTION
     Dosage: UNK, AS NEEDED
     Route: 048
     Dates: start: 20080101
  7. PERCOCET [Concomitant]
     Dosage: UNK

REACTIONS (2)
  - CEREBROVASCULAR ACCIDENT [None]
  - CEREBRAL HAEMORRHAGE [None]
